FAERS Safety Report 5474355-3 (Version None)
Quarter: 2007Q4

REPORT INFORMATION
  Report Type: 
  Country: None (occurrence: None)
  Receive Date: 20071002
  Receipt Date: 20070928
  Transmission Date: 20080405
  Serious: Yes (Death)
  Sender: FDA-Public Use
  Company Number: PHHO2006JP05887

PATIENT
  Age: 69 Year
  Sex: Female
  Weight: 37 kg

DRUGS (18)
  1. GLEEVEC [Suspect]
     Indication: GASTROINTESTINAL STROMAL TUMOUR
     Dosage: 300 MG, QD
     Route: 048
     Dates: start: 20050223, end: 20060124
  2. VITAMEDIN S [Concomitant]
  3. GASMOTIN [Concomitant]
  4. DAIOU [Concomitant]
  5. KAMAG [Concomitant]
  6. FERROMIA [Concomitant]
  7. CATLEP [Concomitant]
  8. ARTZ [Concomitant]
  9. TOLEDOMIN [Concomitant]
  10. DOGMATYL [Concomitant]
  11. CERCINE [Concomitant]
  12. TETRAMIDE [Concomitant]
  13. SILECE [Concomitant]
  14. LORAMET [Concomitant]
  15. RESLIN [Concomitant]
  16. RAVONA [Concomitant]
  17. PAXIL [Concomitant]
  18. ANTIALLERGIC AGENTS, EXCL CORTICOSTEROIDS [Concomitant]

REACTIONS (5)
  - COMPLETED SUICIDE [None]
  - CONCOMITANT DISEASE PROGRESSION [None]
  - DEPRESSION [None]
  - INSOMNIA [None]
  - STRESS [None]
